FAERS Safety Report 19583718 (Version 1)
Quarter: 2021Q3

REPORT INFORMATION
  Report Type: Spontaneous
  Country: CN (occurrence: CN)
  Receive Date: 20210720
  Receipt Date: 20210720
  Transmission Date: 20211014
  Serious: Yes (Other)
  Sender: FDA-Public Use
  Company Number: CN-ROCHE-2873483

PATIENT
  Age: 66 Year
  Sex: Male
  Weight: 75 kg

DRUGS (27)
  1. CYCLOPHOSPHAMIDE. [Concomitant]
     Active Substance: CYCLOPHOSPHAMIDE
     Dosage: R?CHO REGIMEN, ON DAY 1
     Dates: start: 20210509
  2. LIPOSOMAL DOXORUBICIN [Concomitant]
     Active Substance: DOXORUBICIN HYDROCHLORIDE
     Indication: DIFFUSE LARGE B-CELL LYMPHOMA STAGE II
     Dosage: R?CHOPE REGIMEN, ON DAY 1
     Dates: start: 20201127
  3. PREDNISONE. [Concomitant]
     Active Substance: PREDNISONE
     Dosage: R?CHO REGIMEN, ON DAY 1?5
     Dates: start: 20210509
  4. MABTHERA [Suspect]
     Active Substance: RITUXIMAB
     Dosage: R?CHO REGIMEN, ON DAY 0
     Route: 065
     Dates: start: 20210322
  5. VINDESINE [Concomitant]
     Active Substance: VINDESINE
     Indication: DIFFUSE LARGE B-CELL LYMPHOMA STAGE II
     Dosage: R?CHOPE REGIMEN, ON DAY 1
     Dates: start: 20201127
  6. VINDESINE [Concomitant]
     Active Substance: VINDESINE
     Dosage: ON 09 JAN 2021, 29 JAN 2021 AND 22 FEB 2021, R?CHOP REGIMEN FOR 4 CYCLES, ON DAY 1
     Dates: start: 20201218
  7. VINDESINE [Concomitant]
     Active Substance: VINDESINE
     Dosage: R?CHOP REGIMEN, ON DAY 1
     Dates: start: 20210412
  8. MABTHERA [Suspect]
     Active Substance: RITUXIMAB
     Dosage: SUBSEQUENTLY ON 23/JUN/2021, R?GEMOX REGIMEN, ON DAY 0
     Route: 065
     Dates: start: 20210524
  9. LIPOSOMAL DOXORUBICIN [Concomitant]
     Active Substance: DOXORUBICIN HYDROCHLORIDE
     Dosage: ON 09 JAN 2021, 29 JAN 2021 AND 22 FEB 2021, R?CHOP REGIMEN FOR 4 CYCLES, ON DAY 1
     Dates: start: 20201218
  10. OXALIPLATIN. [Concomitant]
     Active Substance: OXALIPLATIN
     Indication: DIFFUSE LARGE B-CELL LYMPHOMA STAGE II
     Dosage: ON 23 JUN 2021, R?GEMOX REGIMEN
     Dates: start: 20210524
  11. CYCLOPHOSPHAMIDE. [Concomitant]
     Active Substance: CYCLOPHOSPHAMIDE
     Dosage: R?CHO REGIMEN, ON DAY 1
     Dates: start: 20210322
  12. PREDNISONE. [Concomitant]
     Active Substance: PREDNISONE
     Dosage: R?CHO REGIMEN, ON DAY 1?5
     Dates: start: 20210322
  13. DEXAMETHASONE. [Concomitant]
     Active Substance: DEXAMETHASONE
     Indication: DIFFUSE LARGE B-CELL LYMPHOMA STAGE II
     Dosage: R?CHOP REGIMEN, ON DAY 1?5
     Dates: start: 20210412
  14. PREDNISONE. [Concomitant]
     Active Substance: PREDNISONE
     Indication: DIFFUSE LARGE B-CELL LYMPHOMA STAGE II
     Dosage: R?CHOPE REGIMEN, ON DAY 1?5
     Dates: start: 20201127
  15. CYCLOPHOSPHAMIDE. [Concomitant]
     Active Substance: CYCLOPHOSPHAMIDE
     Dosage: ON 09 JAN 2021, 29 JAN 2021 AND 22 FEB 2021, R?CHOP REGIMEN FOR 4 CYCLES, ON DAY 1
     Dates: start: 20201218
  16. CYCLOPHOSPHAMIDE. [Concomitant]
     Active Substance: CYCLOPHOSPHAMIDE
     Dosage: R?CHOP REGIMEN, ON DAY 1
     Dates: start: 20210412
  17. VINDESINE [Concomitant]
     Active Substance: VINDESINE
     Dosage: R?CHO REGIMEN, ON DAY 1
     Dates: start: 20210509
  18. MABTHERA [Suspect]
     Active Substance: RITUXIMAB
     Dosage: R?CHO REGIMEN, ON DAY 0
     Route: 065
     Dates: start: 20210509
  19. VINDESINE [Concomitant]
     Active Substance: VINDESINE
     Dosage: R?CHO REGIMEN, ON DAY 1
     Dates: start: 20210322
  20. PREDNISONE. [Concomitant]
     Active Substance: PREDNISONE
     Dosage: ON 09 JAN 2021, 29 JAN 2021 AND 22 FEB 2021, R?CHOP REGIMEN FOR 4 CYCLES, ON DAY 1?5
     Dates: start: 20201218
  21. MABTHERA [Suspect]
     Active Substance: RITUXIMAB
     Indication: DIFFUSE LARGE B-CELL LYMPHOMA STAGE II
     Dosage: R?CHOPE REGIMEN, ON DAY 0
     Route: 065
     Dates: start: 20201127
  22. MABTHERA [Suspect]
     Active Substance: RITUXIMAB
     Dosage: SUBSEQUENT DOSES ON 09/JAN/2021, 29/JAN/2021 AND 22/FEB/2021, R?CHOP REGIMEN FOR 4 CYCLES, ON DAY 0
     Route: 065
     Dates: start: 20201218
  23. MABTHERA [Suspect]
     Active Substance: RITUXIMAB
     Dosage: R?CHOP REGIMEN, ON DAY 0
     Route: 065
     Dates: start: 20210412
  24. CYCLOPHOSPHAMIDE. [Concomitant]
     Active Substance: CYCLOPHOSPHAMIDE
     Indication: DIFFUSE LARGE B-CELL LYMPHOMA STAGE II
     Dosage: R?CHOPE REGIMEN, ON DAY 1
     Dates: start: 20201127
  25. LIPOSOMAL DOXORUBICIN [Concomitant]
     Active Substance: DOXORUBICIN HYDROCHLORIDE
     Dosage: R?CHOP REGIMEN, ON DAY 1
     Dates: start: 20210412
  26. ETOPOSIDE. [Concomitant]
     Active Substance: ETOPOSIDE
     Indication: DIFFUSE LARGE B-CELL LYMPHOMA STAGE II
     Dosage: R?CHOPE REGIMEN, ON DAY 1?5
     Dates: start: 20201127
  27. GEMCITABINE. [Concomitant]
     Active Substance: GEMCITABINE
     Indication: DIFFUSE LARGE B-CELL LYMPHOMA STAGE II
     Dosage: ON  23 JUN 2021, R?GEMOX REGIMEN
     Dates: start: 20210524

REACTIONS (3)
  - Gastrointestinal haemorrhage [Unknown]
  - Occult blood positive [Unknown]
  - Myelosuppression [Unknown]

NARRATIVE: CASE EVENT DATE: 2021
